FAERS Safety Report 6981043 (Version 7)
Quarter: 2013Q2

REPORT INFORMATION
  Report Type: Report from Study
  Country: CN (occurrence: CN)
  Receive Date: 20090429
  Receipt Date: 20130627
  Transmission Date: 20140414
  Serious: Yes (Death, Life-Threatening, Hospitalization)
  Sender: FDA-Public Use
  Company Number: CN-BRISTOL-MYERS SQUIBB COMPANY-14585418

PATIENT
  Age: 24 Year
  Sex: Female

DRUGS (2)
  1. DASATINIB [Suspect]
     Indication: CHRONIC MYELOID LEUKAEMIA
     Dosage: 100 MG-28NOV08-08JAN09?140 MG-09JAN09-08APR09?UNKNOWN DOSE - 09-APR-2009 - 25-APR-2009.
     Route: 048
     Dates: start: 20081128, end: 20090409
  2. OXYGEN [Concomitant]
     Dates: start: 20090421, end: 20090425

REACTIONS (3)
  - Bone marrow necrosis [Fatal]
  - Multi-organ failure [Fatal]
  - Bone pain [Not Recovered/Not Resolved]
